FAERS Safety Report 9877855 (Version 1)
Quarter: 2014Q1

REPORT INFORMATION
  Report Type: Spontaneous
  Country: US (occurrence: US)
  Receive Date: 20140206
  Receipt Date: 20140206
  Transmission Date: 20141002
  Serious: Yes (Other)
  Sender: FDA-Public Use
  Company Number: PHHY2014US013327

PATIENT
  Age: 84 Year
  Sex: Male

DRUGS (1)
  1. NILOTINIB [Suspect]

REACTIONS (4)
  - Cholelithiasis [Unknown]
  - Pancreatitis [Unknown]
  - Abdominal pain [Unknown]
  - Therapeutic response decreased [Unknown]
